FAERS Safety Report 6211105-7 (Version None)
Quarter: 2009Q2

REPORT INFORMATION
  Report Type: 
  Country: None (occurrence: None)
  Receive Date: 20090602
  Receipt Date: 20090529
  Transmission Date: 20091009
  Serious: Yes (Other)
  Sender: FDA-Public Use
  Company Number: US-BAYER-200918884NA

PATIENT
  Sex: Female

DRUGS (1)
  1. MIRENA [Suspect]
     Indication: CONTRACEPTION
     Dosage: CONTINUOUS
     Route: 015
     Dates: start: 20070423

REACTIONS (7)
  - ANXIETY [None]
  - BLINDNESS [None]
  - FEAR [None]
  - INJURY [None]
  - PAIN [None]
  - PAPILLOEDEMA [None]
  - UNEVALUABLE EVENT [None]
